FAERS Safety Report 8157083-5 (Version None)
Quarter: 2012Q1

REPORT INFORMATION
  Report Type: 
  Country: None (occurrence: None)
  Receive Date: 20120210
  Receipt Date: 20120130
  Transmission Date: 20120608
  Serious: Yes (Other)
  Sender: FDA-Public Use
  Company Number: 2011027387

PATIENT
  Age: 46 Year
  Sex: Female
  Weight: 48.0813 kg

DRUGS (9)
  1. HYDROCODONE BITARTRATE + ACETAMINOPHEN [Concomitant]
  2. HIZENTRA [Suspect]
     Indication: IMMUNODEFICIENCY COMMON VARIABLE
     Dosage: SEE IMAGE
     Dates: start: 20100601
  3. HIZENTRA [Suspect]
     Indication: IMMUNODEFICIENCY COMMON VARIABLE
     Dosage: SEE IMAGE
     Dates: start: 20120127, end: 20120127
  4. ULTRAM (TRAMDOL HYDROCHLORIDE) [Concomitant]
  5. VALTREX [Concomitant]
  6. CREON [Concomitant]
  7. ZOFRAN [Concomitant]
  8. VIVELLE-DOT [Concomitant]
  9. AMBIEN [Concomitant]

REACTIONS (8)
  - INFUSION SITE INFLAMMATION [None]
  - INFUSION SITE MASS [None]
  - BACK PAIN [None]
  - INFUSION SITE HAEMATOMA [None]
  - SPLINTER HAEMORRHAGES [None]
  - PAIN IN EXTREMITY [None]
  - MUSCULOSKELETAL STIFFNESS [None]
  - GINGIVAL BLEEDING [None]
